FAERS Safety Report 13004543 (Version 7)
Quarter: 2017Q2

REPORT INFORMATION
  Report Type: Report from Study
  Country: NL (occurrence: NL)
  Receive Date: 20161207
  Receipt Date: 20170629
  Transmission Date: 20170830
  Serious: Yes (Hospitalization)
  Sender: FDA-Public Use
  Company Number: NL-ROCHE-1861656

PATIENT
  Age: 77 Year
  Sex: Male
  Weight: 82 kg

DRUGS (40)
  1. OMEPRAZOLE. [Concomitant]
     Active Substance: OMEPRAZOLE
     Indication: PROPHYLAXIS
     Route: 065
     Dates: start: 2014
  2. LERCANIDIPINE [Concomitant]
     Active Substance: LERCANIDIPINE
     Indication: HYPERTENSION
     Route: 065
     Dates: start: 2014, end: 201612
  3. OXYNORM [Concomitant]
     Active Substance: OXYCODONE HYDROCHLORIDE
     Indication: PAIN
     Route: 065
     Dates: start: 201610, end: 20170119
  4. FENTANYL. [Concomitant]
     Active Substance: FENTANYL
     Indication: PAIN
     Route: 065
     Dates: start: 201610
  5. RESONIUM [Concomitant]
     Active Substance: SODIUM POLYSTYRENE SULFONATE
     Route: 065
     Dates: start: 20170102, end: 20170102
  6. LOPERAMIDE [Concomitant]
     Active Substance: LOPERAMIDE
     Route: 065
     Dates: start: 20161216, end: 20161219
  7. PACLITAXEL. [Suspect]
     Active Substance: PACLITAXEL
     Indication: NON-SMALL CELL LUNG CANCER STAGE IV
     Dosage: DOSE PER PROTOCOL?MOST RECENT DOSE PRIOR TO ONSET OF FIRST EPISODE OF RENAL IMPAIRMENT: 22/NOV/2016
     Route: 042
     Dates: start: 20161122
  8. ZYLORIC [Concomitant]
     Active Substance: ALLOPURINOL
     Indication: ARTHRITIS
     Route: 065
     Dates: start: 201505
  9. XUMADOL [Concomitant]
     Route: 065
     Dates: start: 20161128
  10. CLEMASTINE [Concomitant]
     Active Substance: CLEMASTINE
     Route: 065
     Dates: start: 20170102, end: 20170102
  11. CANNABIS OIL [Concomitant]
     Route: 065
     Dates: start: 20161108
  12. RESONIUM [Concomitant]
     Active Substance: SODIUM POLYSTYRENE SULFONATE
     Indication: BLOOD POTASSIUM INCREASED
     Route: 065
     Dates: start: 20161128, end: 20161212
  13. ZOFRAN [Concomitant]
     Active Substance: ONDANSETRON HYDROCHLORIDE
     Route: 048
     Dates: start: 20170108, end: 20170109
  14. PRIMPERAN [Concomitant]
     Active Substance: METOCLOPRAMIDE HYDROCHLORIDE
     Indication: NAUSEA
     Route: 042
     Dates: start: 20170109, end: 20170112
  15. ONDANSETRON [Concomitant]
     Active Substance: ONDANSETRON
     Route: 065
     Dates: start: 20161212, end: 20161212
  16. ENALAPRIL [Concomitant]
     Active Substance: ENALAPRIL
     Indication: HYPERTENSION
     Route: 065
     Dates: start: 2014
  17. GLUCOSE/INSULIN [Concomitant]
     Indication: BLOOD POTASSIUM INCREASED
     Dosage: 10 UNITS INSULIN IN 50ML OF 50% GLUCOSE INFUSION
     Route: 065
     Dates: start: 20161129, end: 20161129
  18. RANITIDINE. [Concomitant]
     Active Substance: RANITIDINE
     Route: 065
     Dates: start: 20161212, end: 20161212
  19. XUMADOL [Concomitant]
     Indication: PAIN
     Route: 065
     Dates: start: 201610
  20. RESONIUM [Concomitant]
     Active Substance: SODIUM POLYSTYRENE SULFONATE
     Indication: HYPERKALAEMIA
     Route: 065
     Dates: start: 20161217, end: 20161217
  21. RESONIUM [Concomitant]
     Active Substance: SODIUM POLYSTYRENE SULFONATE
     Dosage: 30 GRAM CLUSTER
     Route: 065
     Dates: start: 20170108, end: 20170108
  22. LOPERAMIDE [Concomitant]
     Active Substance: LOPERAMIDE
     Indication: DIARRHOEA
     Route: 065
     Dates: start: 20161128, end: 20161130
  23. PRIMPERAN [Concomitant]
     Active Substance: METOCLOPRAMIDE HYDROCHLORIDE
     Route: 065
     Dates: start: 20161217
  24. ATORVASTATIN [Concomitant]
     Active Substance: ATORVASTATIN
     Indication: BLOOD CHOLESTEROL
     Route: 065
     Dates: start: 2015
  25. NUTRITIONAL DRINK [Concomitant]
     Indication: DECREASED APPETITE
     Route: 065
     Dates: start: 20161012
  26. AMITRIPTYLINE [Concomitant]
     Active Substance: AMITRIPTYLINE
     Indication: PARAESTHESIA
     Route: 065
     Dates: start: 20161128
  27. ZOFRAN [Concomitant]
     Active Substance: ONDANSETRON HYDROCHLORIDE
     Indication: NAUSEA
     Route: 042
     Dates: start: 20170109, end: 20170111
  28. ONDANSETRON [Concomitant]
     Active Substance: ONDANSETRON
     Route: 065
     Dates: start: 20170102, end: 20170102
  29. CARBOPLATIN. [Suspect]
     Active Substance: CARBOPLATIN
     Indication: NON-SMALL CELL LUNG CANCER STAGE IV
     Dosage: AUC OF 6 MG/ML/MIN (PER PROTOCOL)?MOST RECENT DOSE PRIOR TO ONSET OF THE FIRST EPISODE OF RENAL IMPA
     Route: 042
     Dates: start: 20161122
  30. LOPERAMIDE [Concomitant]
     Active Substance: LOPERAMIDE
     Route: 065
     Dates: start: 20161216, end: 20161216
  31. LOPERAMIDE [Concomitant]
     Active Substance: LOPERAMIDE
     Route: 065
     Dates: start: 20170109, end: 20170110
  32. ATEZOLIZUMAB [Suspect]
     Active Substance: ATEZOLIZUMAB
     Indication: NON-SMALL CELL LUNG CANCER STAGE IV
     Dosage: MOST RECENT DOSE PRIOR TO THE ONSET OF THE FIRST EPISODE OF RENAL IMPAIRMENT: 22/NOV/2016?MOST RECEN
     Route: 042
     Dates: start: 20161122
  33. METFORMIN [Concomitant]
     Active Substance: METFORMIN HYDROCHLORIDE
     Indication: DIABETES MELLITUS
     Route: 065
     Dates: start: 2015
  34. LOPERAMIDE [Concomitant]
     Active Substance: LOPERAMIDE
     Route: 065
     Dates: start: 20161217
  35. LOPERAMIDE [Concomitant]
     Active Substance: LOPERAMIDE
     Route: 065
     Dates: start: 201704
  36. INSULIN [Concomitant]
     Active Substance: INSULIN NOS
     Indication: DIABETES MELLITUS
     Route: 065
     Dates: start: 20161212, end: 20161217
  37. PRIMPERAN [Concomitant]
     Active Substance: METOCLOPRAMIDE HYDROCHLORIDE
     Route: 065
     Dates: start: 20161128
  38. MAGNESIUMHYDROXIDE [Concomitant]
     Route: 065
     Dates: start: 20161122
  39. CLEMASTINE [Concomitant]
     Active Substance: CLEMASTINE
     Route: 065
     Dates: start: 20161212, end: 20161212
  40. RANITIDINE. [Concomitant]
     Active Substance: RANITIDINE
     Route: 065
     Dates: start: 20170102, end: 20170102

REACTIONS (1)
  - Renal impairment [Recovered/Resolved]

NARRATIVE: CASE EVENT DATE: 20161122
